FAERS Safety Report 10026380 (Version 2)
Quarter: 2014Q1

REPORT INFORMATION
  Report Type: Spontaneous
  Country: US (occurrence: US)
  Receive Date: 20140321
  Receipt Date: 20140321
  Transmission Date: 20141002
  Serious: No
  Sender: FDA-Public Use
  Company Number: US-ALLERGAN-1319977US

PATIENT
  Age: 81 Year
  Sex: Female

DRUGS (5)
  1. LUMIGAN [Suspect]
     Indication: GLAUCOMA
     Dosage: 2 GTT, QHS
     Route: 047
  2. COSOPT [Concomitant]
     Indication: MACULAR DEGENERATION
     Dosage: 2 GTT, BID
     Route: 047
  3. CLEAR EYES                         /00419602/ [Concomitant]
     Indication: EYE PRURITUS
     Dosage: 2 GTT, BID
     Route: 047
  4. NEXIUM                             /01479302/ [Concomitant]
     Indication: GASTROOESOPHAGEAL REFLUX DISEASE
     Dosage: 40 MG, QAM
     Route: 048
  5. RESTASIS [Concomitant]
     Indication: PRODUCT USED FOR UNKNOWN INDICATION

REACTIONS (5)
  - Visual acuity reduced [Recovering/Resolving]
  - Visual acuity reduced [Not Recovered/Not Resolved]
  - Intraocular pressure increased [Unknown]
  - Expired drug administered [Unknown]
  - Lacrimation increased [Unknown]
